FAERS Safety Report 16651920 (Version 1)
Quarter: 2019Q3

REPORT INFORMATION
  Report Type: Spontaneous
  Country: US (occurrence: US)
  Receive Date: 20190617
  Receipt Date: 20190617
  Transmission Date: 20191004
  Serious: No
  Sender: FDA-Public Use
  Company Number: None

PATIENT
  Sex: Female

DRUGS (1)
  1. STELARA [Suspect]
     Active Substance: USTEKINUMAB
     Indication: MIGRAINE
     Dosage: ?          OTHER FREQUENCY:EVERY 12 HOURS ;?
     Route: 058
     Dates: start: 2019

REACTIONS (1)
  - Unevaluable event [None]
